FAERS Safety Report 17919851 (Version 1)
Quarter: 2020Q2

REPORT INFORMATION
  Report Type: Spontaneous
  Country: US (occurrence: US)
  Receive Date: 20200619
  Receipt Date: 20200619
  Transmission Date: 20200714
  Serious: Yes (Other)
  Sender: FDA-Public Use
  Company Number: US-MACLEODS PHARMACEUTICALS US LTD-MAC2020026836

PATIENT

DRUGS (1)
  1. LIDOCAINE. [Suspect]
     Active Substance: LIDOCAINE
     Indication: PRODUCT USED FOR UNKNOWN INDICATION
     Dosage: UNK
     Route: 065
     Dates: start: 2003

REACTIONS (7)
  - Angioedema [Unknown]
  - Speech disorder [Unknown]
  - Muscle rigidity [Unknown]
  - Drug hypersensitivity [Unknown]
  - Swelling [Unknown]
  - Moaning [Unknown]
  - Screaming [Unknown]

NARRATIVE: CASE EVENT DATE: 2003
